FAERS Safety Report 15045922 (Version 1)
Quarter: 2018Q2

REPORT INFORMATION
  Report Type: Spontaneous
  Country: US (occurrence: US)
  Receive Date: 20180601
  Receipt Date: 20180601
  Transmission Date: 20180711
  Serious: Yes (Other)
  Sender: FDA-Public Use
  Company Number: None

PATIENT
  Age: 53 Year
  Sex: Female

DRUGS (1)
  1. SERTRALINE, 100 MG MG [Suspect]
     Active Substance: SERTRALINE HYDROCHLORIDE
     Route: 048
     Dates: start: 20180326, end: 20180601

REACTIONS (3)
  - Withdrawal syndrome [None]
  - Tremor [None]
  - Migraine [None]

NARRATIVE: CASE EVENT DATE: 20180326
